FAERS Safety Report 13502089 (Version 5)
Quarter: 2017Q3

REPORT INFORMATION
  Report Type: Spontaneous
  Country: IT (occurrence: IT)
  Receive Date: 20170502
  Receipt Date: 20170814
  Transmission Date: 20171127
  Serious: Yes (Death)
  Sender: FDA-Public Use
  Company Number: IT-ROCHE-1926417

PATIENT
  Age: 47 Year
  Sex: Female
  Weight: 55 kg

DRUGS (4)
  1. XGEVA [Suspect]
     Active Substance: DENOSUMAB
     Indication: PRODUCT USED FOR UNKNOWN INDICATION
     Dosage: 120 MG VIAL (GLASS) - 1.7 ML 1 VIAL
     Route: 058
  2. AVASTIN [Suspect]
     Active Substance: BEVACIZUMAB
     Indication: PRODUCT USED FOR UNKNOWN INDICATION
     Dosage: CONCENTRATE FOR SOLUTION FOR INFUSION?1 X 400 MG VIAL/1 X 100 MG VIAL
     Route: 042
     Dates: start: 20161116, end: 20170223
  3. PACLITAXEL. [Suspect]
     Active Substance: PACLITAXEL
     Indication: PRODUCT USED FOR UNKNOWN INDICATION
     Dosage: CONCENTRATE FOR SOLUTION FOR INFUSION?6 MG/ML (16.7 ML VIAL/5 ML VIAL)
     Route: 042
     Dates: start: 20161116, end: 20170223
  4. CIPROFLOXACIN. [Concomitant]
     Active Substance: CIPROFLOXACIN
     Route: 065
     Dates: start: 20170315, end: 20170322

REACTIONS (5)
  - Haemolytic anaemia [Fatal]
  - Platelet count decreased [Fatal]
  - Thrombocytopenic purpura [Fatal]
  - Confusional state [Fatal]
  - Abdominal pain [Fatal]

NARRATIVE: CASE EVENT DATE: 20170329
